FAERS Safety Report 8596432 (Version 4)
Quarter: 2013Q4

REPORT INFORMATION
  Report Type: Report from Study
  Country: DE (occurrence: DE)
  Receive Date: 20120605
  Receipt Date: 20131114
  Transmission Date: 20140711
  Serious: Yes (Other)
  Sender: FDA-Public Use
  Company Number: DE-UCBSA-058333

PATIENT
  Age: 41 Year
  Sex: Female

DRUGS (10)
  1. CIMZIA [Suspect]
     Indication: RHEUMATOID ARTHRITIS
     Route: 058
     Dates: start: 20110628
  2. PREDNISOLONE [Concomitant]
     Indication: RHEUMATOID ARTHRITIS
     Dosage: DOSE STRENGH: 2.5 MG
     Route: 048
     Dates: start: 20110808, end: 20120229
  3. PREDNISOLONE [Concomitant]
     Indication: RHEUMATOID ARTHRITIS
     Dosage: DOSE STRENGH: 2.5 MG
     Route: 048
     Dates: start: 20120301
  4. FOLCUR [Concomitant]
     Indication: PROPHYLAXIS
     Dosage: DOSE : 5 MG AND DRUG FREQUENCY : QS
     Route: 048
  5. CALCILAC [Concomitant]
     Indication: OSTEOPOROSIS PROPHYLAXIS
     Route: 048
     Dates: start: 20030212
  6. HAEMOPROTECT [Concomitant]
     Indication: IRON DEFICIENCY ANAEMIA
     Route: 048
     Dates: start: 20091207, end: 201107
  7. HAEMOPROTECT [Concomitant]
     Indication: IRON DEFICIENCY ANAEMIA
     Route: 048
     Dates: start: 20110823, end: 20111005
  8. HAEMOPROTECT [Concomitant]
     Indication: IRON DEFICIENCY ANAEMIA
     Route: 048
     Dates: start: 20111006, end: 20111215
  9. HAEMOPROTECT [Concomitant]
     Indication: IRON DEFICIENCY ANAEMIA
     Route: 048
     Dates: start: 20111216, end: 201206
  10. MTX [Concomitant]
     Indication: RHEUMATOID ARTHRITIS
     Dosage: DOSE : 20 MG DRUG FREQUECNY: QS
     Route: 048
     Dates: start: 20090525

REACTIONS (1)
  - Gastrointestinal fungal infection [Recovered/Resolved]
